FAERS Safety Report 4709527-6 (Version None)
Quarter: 2005Q3

REPORT INFORMATION
  Report Type: 
  Country: None (occurrence: None)
  Receive Date: 20050706
  Receipt Date: 20050706
  Transmission Date: 20060218
  Serious: Yes (Hospitalization)
  Sender: FDA-Public Use
  Company Number: None

PATIENT
  Sex: Male
  Weight: 102 kg

DRUGS (1)
  1. WARFARIN [Suspect]
     Dosage: 5MG   QDAY   ORAL
     Route: 048

REACTIONS (2)
  - CEREBRAL HAEMORRHAGE [None]
  - CONFUSIONAL STATE [None]
